FAERS Safety Report 18770679 (Version 1)
Quarter: 2021Q1

REPORT INFORMATION
  Report Type: Spontaneous
  Country: US (occurrence: US)
  Receive Date: 20210122
  Receipt Date: 20210122
  Transmission Date: 20210419
  Serious: No
  Sender: FDA-Public Use
  Company Number: US-GLAXOSMITHKLINE-US2021AMR008456

PATIENT
  Sex: Female

DRUGS (1)
  1. ZEJULA [Suspect]
     Active Substance: NIRAPARIB
     Indication: OVARIAN CANCER
     Dosage: 300 MG, QD
     Route: 048
     Dates: start: 20170731

REACTIONS (6)
  - Faeces discoloured [Unknown]
  - Anaemia [Unknown]
  - White blood cell count decreased [Unknown]
  - Vomiting [Unknown]
  - Epistaxis [Unknown]
  - Nausea [Unknown]
